FAERS Safety Report 6755805-9 (Version None)
Quarter: 2010Q2

REPORT INFORMATION
  Report Type: 
  Country: None (occurrence: None)
  Receive Date: 20100604
  Receipt Date: 20100525
  Transmission Date: 20101027
  Serious: Yes (Life-Threatening, Hospitalization)
  Sender: FDA-Public Use
  Company Number: FR-PURDUE-GBR-2010-0006602

PATIENT
  Sex: Female

DRUGS (4)
  1. OXYCONTIN [Suspect]
     Indication: POST-TRAUMATIC PAIN
     Dosage: 5 MG, BID
     Route: 048
     Dates: start: 20091102
  2. ARIXTRA [Suspect]
     Indication: THROMBOSIS PROPHYLAXIS
     Dosage: 2.5 MG, DAILY
     Route: 058
     Dates: start: 20091109, end: 20091126
  3. KARDEGIC                           /00002703/ [Suspect]
     Indication: ARTERITIS
     Dosage: 160 MG, DAILY
     Route: 048
     Dates: start: 20090813, end: 20091126
  4. EXELON [Suspect]
     Dosage: 9.5 MG, DAILY
     Route: 062
     Dates: start: 20090813

REACTIONS (1)
  - RECTAL HAEMORRHAGE [None]
